FAERS Safety Report 4558835-0 (Version None)
Quarter: 2005Q1

REPORT INFORMATION
  Report Type: 
  Country: None (occurrence: None)
  Receive Date: 20050119
  Receipt Date: 20050107
  Transmission Date: 20050727
  Serious: Yes (Hospitalization)
  Sender: FDA-Public Use
  Company Number: 001-0981-995326

PATIENT
  Age: 68 Year
  Sex: Male
  Weight: 95.709 kg

DRUGS (5)
  1. ATORVASTATIN (ATORVASTATIN) [Suspect]
     Indication: CORONARY ARTERY DISEASE
     Dosage: SEE IMAGE
     Route: 048
     Dates: start: 19980819, end: 19981013
  2. ATORVASTATIN (ATORVASTATIN) [Suspect]
     Indication: CORONARY ARTERY DISEASE
     Dosage: SEE IMAGE
     Route: 048
     Dates: start: 19981014, end: 19990813
  3. WARFARIN SODIUM [Concomitant]
  4. ALLOPURINOL [Concomitant]
  5. MULTIVITAMINS (ERCOCALCIFEROL, ASCORBIC ACID, FOLIC ACID, THIAMINE HYD [Concomitant]

REACTIONS (34)
  - ACTIVATED PARTIAL THROMBOPLASTIN TIME PROLONGED [None]
  - ANAEMIA [None]
  - ANAESTHETIC COMPLICATION [None]
  - ASTHENIA [None]
  - BACK PAIN [None]
  - BLOOD CREATININE INCREASED [None]
  - BLOOD UREA INCREASED [None]
  - BUTTOCK PAIN [None]
  - DUODENAL ULCER [None]
  - FASCIITIS [None]
  - GAIT DISTURBANCE [None]
  - GASTRIC ULCER [None]
  - HYPOAESTHESIA [None]
  - INADEQUATE ANALGESIA [None]
  - LUMBAR SPINAL STENOSIS [None]
  - MELAENA [None]
  - MOBILITY DECREASED [None]
  - MYOSITIS [None]
  - NAUSEA [None]
  - OSTEOARTHRITIS [None]
  - PAIN [None]
  - PAIN IN EXTREMITY [None]
  - PARAESTHESIA [None]
  - POLYMYALGIA RHEUMATICA [None]
  - POLYNEUROPATHY [None]
  - POST PROCEDURAL COMPLICATION [None]
  - PROTHROMBIN TIME PROLONGED [None]
  - PRURITUS [None]
  - RADICULOPATHY [None]
  - SCIATICA [None]
  - SENSORY DISTURBANCE [None]
  - SPINAL OSTEOARTHRITIS [None]
  - STOMACH DISCOMFORT [None]
  - VOMITING [None]
